FAERS Safety Report 8794414 (Version 1)
Quarter: 2012Q4

REPORT INFORMATION
  Report Type: 
  Country: US (occurrence: US)
  Receive Date: 20120917
  Receipt Date: 20120917
  Transmission Date: 20130627
  Serious: Yes (Hospitalization, Other)
  Sender: FDA-Public Use
  Company Number: PHHY2012US078739

PATIENT
  Age: 30 Year
  Sex: Female

DRUGS (5)
  1. PARACETAMOL [Suspect]
     Dosage: 50 mg, UNK
     Route: 048
  2. PARACETAMOL [Suspect]
     Dosage: 100 mg, UNK
     Route: 048
  3. PARACETAMOL [Suspect]
     Dosage: 200 mg, UNK
     Route: 048
  4. PARACETAMOL [Suspect]
     Dosage: 325 mg, UNK
     Route: 048
  5. PARACETAMOL [Suspect]
     Dosage: 650 mg, UNK

REACTIONS (5)
  - Drug eruption [Recovered/Resolved]
  - Rash maculo-papular [Recovered/Resolved]
  - Erythema [Recovered/Resolved]
  - Pruritus [Recovered/Resolved]
  - Dermatitis [Recovered/Resolved]
